FAERS Safety Report 15983777 (Version 1)
Quarter: 2019Q1

REPORT INFORMATION
  Report Type: Report from Study
  Country: US (occurrence: US)
  Receive Date: 20190219
  Receipt Date: 20190219
  Transmission Date: 20190418
  Serious: Yes (Other)
  Sender: FDA-Public Use
  Company Number: US-BIOGEN-2019BI00695539

PATIENT
  Sex: Female

DRUGS (1)
  1. TECFIDERA [Suspect]
     Active Substance: DIMETHYL FUMARATE
     Indication: MULTIPLE SCLEROSIS
     Route: 065
     Dates: start: 20171018, end: 201801

REACTIONS (7)
  - Migraine [Not Recovered/Not Resolved]
  - Procedural pain [Not Recovered/Not Resolved]
  - Nausea [Not Recovered/Not Resolved]
  - Nerve compression [Unknown]
  - Intervertebral disc disorder [Unknown]
  - Respiratory tract infection [Recovered/Resolved]
  - Flushing [Recovered/Resolved]
